FAERS Safety Report 7518601-0 (Version None)
Quarter: 2011Q2

REPORT INFORMATION
  Report Type: 
  Country: None (occurrence: None)
  Receive Date: 20110523
  Receipt Date: 20110506
  Transmission Date: 20111010
  Serious: Yes (Other)
  Sender: FDA-Public Use
  Company Number: AUR-APL-2011-01602

PATIENT
  Age: 37 Year
  Sex: Female
  Weight: 63.5 kg

DRUGS (4)
  1. AMOXICILLIN [Suspect]
     Dates: start: 20110420, end: 20110427
  2. MEFENAMIC ACID [Concomitant]
  3. CLARITHROMYCIN [Concomitant]
  4. MICROGYNON (ETHINYLESTRADIOL, ETHINYLOESTRADIOL, LEVONORGESTREL) [Concomitant]

REACTIONS (2)
  - CHAPPED LIPS [None]
  - PARAESTHESIA ORAL [None]
